FAERS Safety Report 9194669 (Version 1)
Quarter: 2013Q1

REPORT INFORMATION
  Report Type: Spontaneous
  Country: US (occurrence: US)
  Receive Date: 20130327
  Receipt Date: 20130327
  Transmission Date: 20140127
  Serious: No
  Sender: FDA-Public Use
  Company Number: US-ALLERGAN-1206994US

PATIENT
  Sex: Female

DRUGS (3)
  1. LATISSE 0.03% [Suspect]
     Indication: GROWTH OF EYELASHES
     Dosage: 2 UNK, QHS
     Route: 061
     Dates: start: 2011
  2. OPTIVAR [Concomitant]
     Indication: EYE PRURITUS
     Dosage: UNK
     Route: 047
  3. ARTIFICIAL TEARS                   /00445101/ [Concomitant]
     Indication: PRODUCT USED FOR UNKNOWN INDICATION
     Dosage: UNK
     Route: 047

REACTIONS (8)
  - Incorrect dose administered [Unknown]
  - Wrong technique in drug usage process [Unknown]
  - Trichiasis [Recovering/Resolving]
  - Eye disorder [Recovering/Resolving]
  - Madarosis [Recovering/Resolving]
  - Madarosis [Recovering/Resolving]
  - Hair growth abnormal [Recovering/Resolving]
  - Hair growth abnormal [Recovering/Resolving]
